FAERS Safety Report 8776773 (Version 1)
Quarter: 2012Q4

REPORT INFORMATION
  Report Type: 
  Country: HU (occurrence: HU)
  Receive Date: 20120911
  Receipt Date: 20120911
  Transmission Date: 20130627
  Serious: Yes (Hospitalization, Disabling)
  Sender: FDA-Public Use
  Company Number: HU-PFIZER INC-2012219849

PATIENT
  Age: 72 Year
  Sex: Female

DRUGS (5)
  1. SUTENT [Suspect]
     Indication: ENDOCRINE PANCREATIC DISORDER
     Dosage: 37.5 mg, 1x/day
     Dates: start: 20111025, end: 20120227
  2. PANGROL ^BERLIN-CHEMIE^ [Concomitant]
     Indication: PANCREATECTOMY
     Dosage: 25000 IU, 3x/day
     Dates: start: 2007, end: 2009
  3. VITAMIN D3 [Concomitant]
     Dosage: 3000 IU, 1x/day
     Dates: start: 2010
  4. ACTRAPID [Concomitant]
     Indication: PANCREATECTOMY
     Dosage: 6-6-6 IU
  5. INSULATARD [Concomitant]
     Indication: PANCREATECTOMY
     Dosage: 6 IU, UNK

REACTIONS (1)
  - Myelodysplastic syndrome [Not Recovered/Not Resolved]
